FAERS Safety Report 15714783 (Version 1)
Quarter: 2018Q4

REPORT INFORMATION
  Report Type: Spontaneous
  Country: NL (occurrence: NL)
  Receive Date: 20181212
  Receipt Date: 20181212
  Transmission Date: 20190205
  Serious: Yes (Other)
  Sender: FDA-Public Use
  Company Number: NL-TEVA-2018-NL-984997

PATIENT
  Age: 26 Year
  Sex: Female
  Weight: 94 kg

DRUGS (5)
  1. CALCI CHEW [Concomitant]
  2. TRAMADOL CAPSULE, 50 MG (MILLIGRAM) [Suspect]
     Active Substance: TRAMADOL
     Indication: GALLBLADDER OPERATION
     Dosage: 3 TIMES A DAY
     Route: 065
     Dates: start: 20181113, end: 20181114
  3. VITAMINE SUPPLEMENT [Concomitant]
  4. PRIMPERAN [Concomitant]
     Active Substance: METOCLOPRAMIDE HYDROCHLORIDE
     Dosage: 3 TIMES A DAY
  5. OMEPRAZOL [Concomitant]
     Active Substance: OMEPRAZOLE
     Dosage: 2 TIMES 40 MG

REACTIONS (7)
  - Palpitations [Recovering/Resolving]
  - Heart rate increased [Recovering/Resolving]
  - Hyperhidrosis [Recovering/Resolving]
  - Syncope [Recovering/Resolving]
  - Restlessness [Recovering/Resolving]
  - Dizziness [Recovering/Resolving]
  - Nausea [Recovering/Resolving]

NARRATIVE: CASE EVENT DATE: 20181114
